FAERS Safety Report 16555797 (Version 1)
Quarter: 2019Q3

REPORT INFORMATION
  Report Type: Spontaneous
  Country: GB (occurrence: GB)
  Receive Date: 20190710
  Receipt Date: 20190710
  Transmission Date: 20191004
  Serious: Yes (Other)
  Sender: FDA-Public Use
  Company Number: GB-MYLANLABS-2019M1063619

PATIENT
  Age: 75 Year
  Sex: Male
  Weight: 63.5 kg

DRUGS (2)
  1. BISOPROLOL [Suspect]
     Active Substance: BISOPROLOL
     Indication: ATRIAL FLUTTER
     Dosage: 1.25 MILLIGRAM
     Route: 048
     Dates: start: 20181126, end: 20181225
  2. RIVAROXABAN [Concomitant]
     Active Substance: RIVAROXABAN
     Dosage: UNK

REACTIONS (4)
  - Hypopnoea [Recovering/Resolving]
  - Disturbance in attention [Recovering/Resolving]
  - Panic attack [Recovered/Resolved]
  - Lethargy [Recovering/Resolving]
